FAERS Safety Report 7502901-4 (Version None)
Quarter: 2011Q2

REPORT INFORMATION
  Report Type: 
  Country: None (occurrence: None)
  Receive Date: 20110525
  Receipt Date: 20100901
  Transmission Date: 20111010
  Serious: No
  Sender: FDA-Public Use
  Company Number: US-NOVEN-ALL1-2010-04643

PATIENT
  Sex: Male
  Weight: 47.619 kg

DRUGS (3)
  1. FOCALIN [Concomitant]
     Dosage: 20 MG, 1X/DAY:QD
     Route: 048
     Dates: start: 20100301
  2. DAYTRANA [Suspect]
     Dosage: 20 MG, 1X/DAY:QD
     Route: 062
     Dates: start: 20100201
  3. CELEXA [Concomitant]
     Dosage: 30 MG, 1X/DAY:QD
     Route: 048
     Dates: start: 20090901

REACTIONS (9)
  - APPLICATION SITE PRURITUS [None]
  - WRONG TECHNIQUE IN DRUG USAGE PROCESS [None]
  - DRUG EFFECT DECREASED [None]
  - APPLICATION SITE IRRITATION [None]
  - APPLICATION SITE DRYNESS [None]
  - DRUG ADMINISTERED AT INAPPROPRIATE SITE [None]
  - ACCIDENTAL EXPOSURE [None]
  - PRODUCT QUALITY ISSUE [None]
  - APPLICATION SITE ERYTHEMA [None]
